FAERS Safety Report 13613260 (Version 1)
Quarter: 2017Q2

REPORT INFORMATION
  Report Type: Spontaneous
  Country: US (occurrence: US)
  Receive Date: 20170605
  Receipt Date: 20170605
  Transmission Date: 20170830
  Serious: Yes (Other)
  Sender: FDA-Public Use
  Company Number: US-BAUSCH-BL-2017-018063

PATIENT
  Age: 64 Year
  Sex: Male
  Weight: 78.54 kg

DRUGS (3)
  1. EFUDEX [Suspect]
     Active Substance: FLUOROURACIL
     Route: 061
     Dates: start: 2016
  2. EFUDEX [Suspect]
     Active Substance: FLUOROURACIL
     Indication: ACTINIC KERATOSIS
     Route: 061
     Dates: start: 201512
  3. EFUDEX [Suspect]
     Active Substance: FLUOROURACIL
     Route: 061
     Dates: start: 201705, end: 201705

REACTIONS (10)
  - Haemorrhage [Not Recovered/Not Resolved]
  - Erythema [Not Recovered/Not Resolved]
  - Urticaria [Recovered/Resolved]
  - Eye swelling [Recovered/Resolved]
  - Pain [Unknown]
  - Burning sensation [Unknown]
  - Squamous cell carcinoma [Unknown]
  - Papule [Unknown]
  - Skin lesion [Not Recovered/Not Resolved]
  - Pruritus [Unknown]

NARRATIVE: CASE EVENT DATE: 201512
